FAERS Safety Report 14768455 (Version 1)
Quarter: 2018Q2

REPORT INFORMATION
  Report Type: Spontaneous
  Country: US (occurrence: US)
  Receive Date: 20180410
  Receipt Date: 20180410
  Transmission Date: 20180711
  Serious: Yes (Life-Threatening, Hospitalization, Other)
  Sender: FDA-Public Use
  Company Number: None

PATIENT
  Age: 75 Year
  Sex: Female
  Weight: 74.84 kg

DRUGS (16)
  1. LEVOTHYROXINE. [Concomitant]
     Active Substance: LEVOTHYROXINE
  2. DULOXETINE. [Concomitant]
     Active Substance: DULOXETINE
  3. TRAMADOL. [Concomitant]
     Active Substance: TRAMADOL
  4. IBANDRONATE SODIUM. [Concomitant]
     Active Substance: IBANDRONATE SODIUM
  5. POTASSIUM GLUCONATE [Concomitant]
     Active Substance: POTASSIUM GLUCONATE
  6. DILTIAZEM. [Concomitant]
     Active Substance: DILTIAZEM
  7. ZYRTEC-D [Concomitant]
     Active Substance: CETIRIZINE HYDROCHLORIDE\PSEUDOEPHEDRINE HYDROCHLORIDE
  8. VITAMIN D3 [Concomitant]
     Active Substance: CHOLECALCIFEROL
  9. ALPRAZOLAM. [Concomitant]
     Active Substance: ALPRAZOLAM
  10. VITAMIN C [Concomitant]
     Active Substance: ASCORBIC ACID
  11. CALICUM [Concomitant]
  12. BENADRYL [Concomitant]
     Active Substance: DIPHENHYDRAMINE HYDROCHLORIDE
  13. CARBAMAZEPINE, 100 MG [Suspect]
     Active Substance: CARBAMAZEPINE
     Indication: TRIGEMINAL NEURALGIA
     Dosage: ?          QUANTITY:1 DF DOSAGE FORM;?
     Route: 048
     Dates: start: 20171106, end: 20171109
  14. MAG. + ZINC [Concomitant]
  15. BIOTIN [Concomitant]
     Active Substance: BIOTIN
  16. BABY ASPIRIN [Concomitant]
     Active Substance: ASPIRIN

REACTIONS (4)
  - Vulvovaginal pruritus [None]
  - Cardio-respiratory arrest [None]
  - Heart rate increased [None]
  - Feeling abnormal [None]

NARRATIVE: CASE EVENT DATE: 20171110
